FAERS Safety Report 17135654 (Version 1)
Quarter: 2019Q4

REPORT INFORMATION
  Report Type: Spontaneous
  Country: JP (occurrence: JP)
  Receive Date: 20191210
  Receipt Date: 20191210
  Transmission Date: 20200122
  Serious: Yes (Death, Other)
  Sender: FDA-Public Use
  Company Number: JP-PFIZER INC-2019530915

PATIENT
  Age: 4 Decade
  Sex: Female

DRUGS (1)
  1. MYLOTARG [Suspect]
     Active Substance: GEMTUZUMAB OZOGAMICIN
     Dosage: 4 MG/M2, ONCE

REACTIONS (8)
  - Venoocclusive liver disease [Unknown]
  - Gastrointestinal mucosal exfoliation [Unknown]
  - Post procedural haemorrhage [Fatal]
  - Graft versus host disease [Unknown]
  - Melaena [Unknown]
  - Diarrhoea [Unknown]
  - Thrombotic microangiopathy [Unknown]
  - Jaundice [Unknown]
